FAERS Safety Report 14381913 (Version 1)
Quarter: 2018Q1

REPORT INFORMATION
  Report Type: Spontaneous
  Country: US (occurrence: US)
  Receive Date: 20180111
  Receipt Date: 20180111
  Transmission Date: 20180509
  Serious: Yes (Disabling, Congenital Anomaly)
  Sender: FDA-Public Use
  Company Number: None

PATIENT
  Age: 59 Year
  Sex: Female
  Weight: 76.5 kg

DRUGS (16)
  1. VITAMIN B COMPLEX [Concomitant]
     Active Substance: CYANOCOBALAMIN\DEXPANTHENOL\NIACINAMIDE\PYRIDOXINE HYDROCHLORIDE\RIBOFLAVIN 5^-PHOSPHATE SODIUM\THIAMINE HYDROCHLORIDE\VITAMIN B COMPLEX
  2. VITAMIN A [Concomitant]
     Active Substance: VITAMIN A
  3. ASPIRIN. [Concomitant]
     Active Substance: ASPIRIN
  4. VITAMIN D [Concomitant]
     Active Substance: CHOLECALCIFEROL
  5. ZOLIDEM ER 12.5 MG [Suspect]
     Active Substance: ZOLPIDEM TARTRATE
     Indication: INSOMNIA
     Dosage: ?          QUANTITY:30 TABLET(S);?
     Route: 048
  6. HAWTHORNE ROOT [Concomitant]
  7. VITAMIN B12 [Concomitant]
     Active Substance: CYANOCOBALAMIN
  8. GENERIC LASIX [Concomitant]
     Active Substance: FUROSEMIDE
  9. FISH OIL [Concomitant]
     Active Substance: FISH OIL
  10. EXTRA VIRGIN OLIVE OIL [Concomitant]
  11. COCONUT SOFTGELS [Concomitant]
  12. VITAMIN C [Concomitant]
     Active Substance: ASCORBIC ACID
  13. VITAMIN E [Concomitant]
     Active Substance: .ALPHA.-TOCOPHEROL
  14. SELENIUM [Concomitant]
     Active Substance: SELENIUM
  15. METOPROLOL. [Concomitant]
     Active Substance: METOPROLOL
  16. COQ10 [Concomitant]
     Active Substance: UBIDECARENONE

REACTIONS (7)
  - Animal scratch [None]
  - Infection [None]
  - Marital problem [None]
  - Drug ineffective [None]
  - Fall [None]
  - Insomnia [None]
  - Product substitution issue [None]

NARRATIVE: CASE EVENT DATE: 20180103
